FAERS Safety Report 9696728 (Version 2)
Quarter: 2015Q3

REPORT INFORMATION
  Report Type: Spontaneous
  Country: US (occurrence: US)
  Receive Date: 20131119
  Receipt Date: 20150803
  Transmission Date: 20151125
  Serious: No
  Sender: FDA-Public Use
  Company Number: US-GILEAD-2007-0014467

PATIENT
  Age: 49 Year
  Sex: Male
  Weight: 102.6 kg

DRUGS (13)
  1. LETAIRIS [Suspect]
     Active Substance: AMBRISENTAN
     Indication: PULMONARY ARTERIAL HYPERTENSION
     Route: 048
     Dates: start: 20071015
  2. SYNTHROID [Concomitant]
     Active Substance: LEVOTHYROXINE SODIUM
  3. AMIODARONE [Concomitant]
     Active Substance: AMIODARONE
  4. XANAX [Concomitant]
     Active Substance: ALPRAZOLAM
  5. VIAGRA [Concomitant]
     Active Substance: SILDENAFIL CITRATE
  6. METOPROLOL [Concomitant]
     Active Substance: METOPROLOL
  7. MILTAZEPINE [Concomitant]
  8. SPIRONOLACTONE. [Concomitant]
     Active Substance: SPIRONOLACTONE
  9. ERGOCALCIFEROL/NICOTINAMIDE/RETINOL/ASCORBIC ACID/FOLIC ACID/PANTHENOL/RIBOFLAVIN/THIAMINE HYDROCHLO [Concomitant]
  10. BENADRYL [Concomitant]
     Active Substance: DIPHENHYDRAMINE HYDROCHLORIDE
     Dates: start: 20071126
  11. COUMADIN [Concomitant]
     Active Substance: WARFARIN SODIUM
  12. MUCINEX [Concomitant]
     Active Substance: GUAIFENESIN
     Dates: start: 20071126
  13. LANOXIN [Concomitant]
     Active Substance: DIGOXIN

REACTIONS (3)
  - Weight increased [Recovered/Resolved]
  - Oedema peripheral [Unknown]
  - Dyspnoea [Unknown]

NARRATIVE: CASE EVENT DATE: 20071029
